FAERS Safety Report 10044255 (Version 1)
Quarter: 2014Q1

REPORT INFORMATION
  Report Type: Spontaneous
  Country: SE (occurrence: None)
  Receive Date: 20140326
  Receipt Date: 20140326
  Transmission Date: 20141002
  Serious: Yes (Death, Other)
  Sender: FDA-Public Use
  Company Number: SE-MDCO-14-00064

PATIENT
  Age: 70 Year
  Sex: Male

DRUGS (2)
  1. ANGIOX [Suspect]
     Indication: MYOCARDIAL INFARCTION
     Dosage: INTRA CORPUS CAVERNOSUM
     Dates: start: 20131012, end: 20131012
  2. ARIXTRA [Suspect]
     Indication: MYOCARDIAL INFARCTION
     Route: 058
     Dates: start: 20131012, end: 20131012

REACTIONS (12)
  - Ventricular tachycardia [None]
  - Ventricular fibrillation [None]
  - Circulatory collapse [None]
  - Loss of consciousness [None]
  - Subdural haematoma [None]
  - Fall [None]
  - Subarachnoid haemorrhage [None]
  - Skull fracture [None]
  - Cerebral haemorrhage [None]
  - Injury [None]
  - Cardiac arrest [None]
  - Syncope [None]
